FAERS Safety Report 24171139 (Version 1)
Quarter: 2024Q3

REPORT INFORMATION
  Report Type: Spontaneous
  Country: US (occurrence: None)
  Receive Date: 20240805
  Receipt Date: 20240805
  Transmission Date: 20241016
  Serious: No
  Sender: Public
  Company Number: None

PATIENT
  Age: 76 Year
  Sex: Female

DRUGS (1)
  1. ADBRY [Suspect]
     Active Substance: TRALOKINUMAB-LDRM
     Dosage: 600 MG   DAY 1,  THEN 300MG EVERY OTHER WEEK SUBCUTANEOUS
     Dates: start: 20240727

REACTIONS (5)
  - Fall [None]
  - Limb injury [None]
  - Muscle strain [None]
  - Injection site erythema [None]
  - Injection site rash [None]
